FAERS Safety Report 20946256 (Version 1)
Quarter: 2022Q2

REPORT INFORMATION
  Report Type: Spontaneous
  Country: US (occurrence: US)
  Receive Date: 20220610
  Receipt Date: 20220610
  Transmission Date: 20220721
  Serious: Yes (Other)
  Sender: FDA-Public Use
  Company Number: US-BAYER-2022A081530

PATIENT
  Age: 87 Year
  Sex: Female

DRUGS (4)
  1. STIVARGA [Suspect]
     Active Substance: REGORAFENIB
     Indication: Colon cancer
     Dosage: 80 MG, UNK FOR DAYS 1-7
     Dates: start: 20220306
  2. STIVARGA [Suspect]
     Active Substance: REGORAFENIB
     Indication: Hepatic cancer metastatic
     Dosage: 120 MG, UNK FOR DAYS 8-14
  3. STIVARGA [Suspect]
     Active Substance: REGORAFENIB
     Indication: Metastases to peritoneum
     Dosage: 160 MG, UNK FOR DAYS 15-21 AND THEN OFF DAYS 22-28 X 1 MONTH
  4. STIVARGA [Suspect]
     Active Substance: REGORAFENIB
     Indication: Colon cancer
     Dosage: 160 MG, QD FOR 1-21 OF A 28 DAY CYCLE
     Dates: end: 20220531

REACTIONS (4)
  - Colon cancer [None]
  - Dysphagia [None]
  - Fatigue [None]
  - Off label use [None]

NARRATIVE: CASE EVENT DATE: 20220306
